FAERS Safety Report 10082141 (Version 1)
Quarter: 2014Q2

REPORT INFORMATION
  Report Type: Spontaneous
  Country: US (occurrence: None)
  Receive Date: 20140414
  Receipt Date: 20140414
  Transmission Date: 20141212
  Serious: Yes (Hospitalization)
  Sender: FDA-Public Use
  Company Number: None

PATIENT
  Age: 60 Year
  Sex: Female
  Weight: 113.4 kg

DRUGS (1)
  1. ULORIC [Suspect]
     Indication: GOUT
     Dosage: 1 PILL
     Route: 048
     Dates: start: 20131205, end: 20140110

REACTIONS (6)
  - Pain in extremity [None]
  - Peripheral swelling [None]
  - Erythema [None]
  - Depression [None]
  - Asthenia [None]
  - Economic problem [None]
